FAERS Safety Report 7962688-8 (Version None)
Quarter: 2011Q4

REPORT INFORMATION
  Report Type: 
  Country: None (occurrence: None)
  Receive Date: 20111207
  Receipt Date: 20111130
  Transmission Date: 20120403
  Serious: Yes (Other)
  Sender: FDA-Public Use
  Company Number: JP-B.I. PHARMACEUTICALS,INC./RIDGEFIELD-2011-EU-00890GD

PATIENT
  Sex: Male

DRUGS (1)
  1. TEMISARTAN [Suspect]
     Dosage: 40 MG

REACTIONS (1)
  - HYPERMAGNESAEMIA [None]
